FAERS Safety Report 13040315 (Version 1)
Quarter: 2016Q4

REPORT INFORMATION
  Report Type: Spontaneous
  Country: US (occurrence: US)
  Receive Date: 20161217
  Receipt Date: 20161217
  Transmission Date: 20170207
  Serious: Yes (Hospitalization)
  Sender: FDA-Public Use
  Company Number: None

PATIENT
  Age: 37 Year
  Sex: Male
  Weight: 104.1 kg

DRUGS (2)
  1. ESCITALOPRAM [Suspect]
     Active Substance: ESCITALOPRAM OXALATE
     Indication: DEPRESSION
     Route: 048
     Dates: start: 20150824, end: 20160303
  2. TRAMADOL. [Suspect]
     Active Substance: TRAMADOL
     Indication: PAIN
     Route: 048
     Dates: start: 20160114, end: 20160303

REACTIONS (13)
  - Serotonin syndrome [None]
  - Irritability [None]
  - Confusional state [None]
  - Headache [None]
  - Hot flush [None]
  - Nausea [None]
  - Vomiting [None]
  - Anxiety [None]
  - Vision blurred [None]
  - Depression [None]
  - Dizziness [None]
  - Diarrhoea [None]
  - Hypertension [None]

NARRATIVE: CASE EVENT DATE: 20160303
